FAERS Safety Report 4753501-0 (Version None)
Quarter: 2005Q3

REPORT INFORMATION
  Report Type: 
  Country: None (occurrence: None)
  Receive Date: 20050826
  Receipt Date: 20050819
  Transmission Date: 20060218
  Serious: Yes (Death, Other)
  Sender: FDA-Public Use
  Company Number: 2005-08-0927

PATIENT
  Age: 69 Year
  Sex: Male
  Weight: 122 kg

DRUGS (4)
  1. ASPIRIN [Suspect]
     Indication: DRUG USE FOR UNKNOWN INDICATION
     Dosage: 81MG PER DAY
     Route: 065
  2. HEPARIN [Suspect]
     Indication: DRUG USE FOR UNKNOWN INDICATION
     Route: 042
     Dates: start: 20050704
  3. PLAVIX [Suspect]
     Indication: DRUG USE FOR UNKNOWN INDICATION
     Route: 065
  4. INTEGRILIN [Concomitant]
     Indication: DRUG USE FOR UNKNOWN INDICATION
     Route: 042
     Dates: start: 20050704, end: 20050705

REACTIONS (5)
  - ANURIA [None]
  - DEATH [None]
  - HAEMATOMA [None]
  - HAEMATURIA [None]
  - THROMBOSIS [None]
